FAERS Safety Report 18508744 (Version 1)
Quarter: 2020Q4

REPORT INFORMATION
  Report Type: Report from Study
  Country: None (occurrence: CA)
  Receive Date: 20201117
  Receipt Date: 20201117
  Transmission Date: 20210114
  Serious: Yes (Hospitalization)
  Sender: FDA-Public Use
  Company Number: CA-ABBVIE-20K-028-3652130-00

PATIENT
  Sex: Female

DRUGS (1)
  1. HUMIRA [Suspect]
     Active Substance: ADALIMUMAB
     Indication: CROHN^S DISEASE
     Route: 058
     Dates: start: 20200706

REACTIONS (13)
  - Frequent bowel movements [Unknown]
  - Anhedonia [Unknown]
  - Depression [Unknown]
  - Diarrhoea [Unknown]
  - Hyperphagia [Unknown]
  - Insomnia [Unknown]
  - Device dislocation [Unknown]
  - Intestinal perforation [Unknown]
  - Adverse food reaction [Unknown]
  - Fatigue [Unknown]
  - Herpes zoster [Unknown]
  - Complication associated with device [Unknown]
  - Memory impairment [Unknown]

NARRATIVE: CASE EVENT DATE: 2020
